FAERS Safety Report 10412291 (Version 3)
Quarter: 2014Q4

REPORT INFORMATION
  Report Type: Spontaneous
  Country: US (occurrence: None)
  Receive Date: 20140821
  Receipt Date: 20141027
  Transmission Date: 20150528
  Serious: Yes (Other)
  Sender: FDA-Public Use
  Company Number: ADR-2014-01324

PATIENT
  Age: 64 Year
  Sex: Female

DRUGS (4)
  1. LIORESAL [Suspect]
     Active Substance: BACLOFEN
     Indication: MUSCLE SPASTICITY
  2. BACLOFEN INTRATHECAL [Suspect]
     Active Substance: BACLOFEN
     Indication: MUSCLE SPASTICITY
  3. BACLOFEN ORAL [Suspect]
     Active Substance: BACLOFEN
  4. ANTIBIOTIC [Suspect]
     Active Substance: UNSPECIFIED INGREDIENT

REACTIONS (16)
  - Drug ineffective [None]
  - Device failure [None]
  - Device battery issue [None]
  - Malaise [None]
  - Post procedural complication [None]
  - Withdrawal syndrome [None]
  - Adverse drug reaction [None]
  - Muscle spasms [None]
  - Pain [None]
  - Paraesthesia [None]
  - Feeling abnormal [None]
  - Muscle spasticity [None]
  - Headache [None]
  - Muscle tightness [None]
  - Drug hypersensitivity [None]
  - Drug dose omission [None]

NARRATIVE: CASE EVENT DATE: 20140721
